FAERS Safety Report 9261050 (Version 1)
Quarter: 2013Q2

REPORT INFORMATION
  Report Type: Spontaneous
  Country: US (occurrence: US)
  Receive Date: 20130429
  Receipt Date: 20130429
  Transmission Date: 20140414
  Serious: No
  Sender: FDA-Public Use
  Company Number: US-AMGEN-USASP2012069614

PATIENT
  Sex: 0

DRUGS (2)
  1. SENSIPAR [Suspect]
     Indication: HYPERPARATHYROIDISM SECONDARY
     Dosage: 2 TABLETS OF 30 MG, QD
     Route: 048
  2. CALCITRIOL [Concomitant]
     Dosage: 0.25 MG, QD

REACTIONS (2)
  - Asthenia [Recovering/Resolving]
  - Abdominal discomfort [Recovering/Resolving]
